FAERS Safety Report 6428446 (Version 2)
Quarter: 2016Q4

REPORT INFORMATION
  Report Type: Spontaneous
  Country: US (occurrence: US)
  Receive Date: 20070927
  Receipt Date: 20161004
  Transmission Date: 20170207
  Serious: Yes (Other)
  Sender: FDA-Public Use
  Company Number: PHBS2007US15871

PATIENT
  Age: 5 Year
  Sex: Female

DRUGS (3)
  1. LETROZOLE. [Suspect]
     Active Substance: LETROZOLE
     Indication: ALBRIGHT^S DISEASE
     Dosage: 2 MG/M2/D
     Route: 065
  2. LEUPROLIDE ACETATE. [Concomitant]
     Active Substance: LEUPROLIDE ACETATE
     Indication: PRECOCIOUS PUBERTY
     Route: 065
  3. LETROZOLE. [Suspect]
     Active Substance: LETROZOLE
     Dosage: 2.5 MG, QD
     Route: 065

REACTIONS (4)
  - Abdominal pain [Unknown]
  - Vomiting [Unknown]
  - Ovarian cyst [Unknown]
  - Adnexal torsion [Unknown]
